FAERS Safety Report 4559731-5 (Version None)
Quarter: 2005Q1

REPORT INFORMATION
  Report Type: 
  Country: None (occurrence: None)
  Receive Date: 20050114
  Receipt Date: 20040304
  Transmission Date: 20050727
  Serious: Yes (Hospitalization)
  Sender: FDA-Public Use
  Company Number: BDI-005875

PATIENT
  Age: 28 Year
  Sex: Female

DRUGS (1)
  1. PROHANCE [Suspect]
     Indication: NUCLEAR MAGNETIC RESONANCE IMAGING BRAIN
     Dosage: 6 ML ONCE IV
     Route: 042
     Dates: start: 20040219, end: 20040219

REACTIONS (2)
  - ABDOMINAL PAIN [None]
  - ANAPHYLACTIC SHOCK [None]
